FAERS Safety Report 8814746 (Version 5)
Quarter: 2012Q4

REPORT INFORMATION
  Report Type: 
  Country: US (occurrence: US)
  Receive Date: 20120928
  Receipt Date: 20121220
  Transmission Date: 20130627
  Serious: Yes (Life-Threatening, Hospitalization, Other)
  Sender: FDA-Public Use
  Company Number: US-GENZYME-CLOF-1002307

PATIENT
  Age: 10 Year
  Sex: Female
  Weight: 44.9 kg

DRUGS (88)
  1. CLOLAR [Suspect]
     Indication: LYMPHOCYTIC LEUKAEMIA
     Dosage: 42.9 mg, qd
     Route: 065
     Dates: start: 20120802, end: 20120806
  2. CYCLOPHOSPHAMIDE [Suspect]
     Indication: LYMPHOCYTIC LEUKAEMIA
     Dosage: 1430 mg, UNK; over 30-60 mins; (consolidation part I)
     Route: 042
  3. CYCLOPHOSPHAMIDE [Suspect]
     Dosage: 629 mg, qd
     Route: 042
     Dates: start: 20120802, end: 20120806
  4. ARA-C [Suspect]
     Indication: LYMPHOCYTIC LEUKAEMIA
     Dosage: 70 mg, UNK
     Route: 037
     Dates: start: 20120601
  5. ARA-C [Suspect]
     Dosage: 107 mg, qd
     Route: 042
     Dates: start: 20120706, end: 20120709
  6. ARA-C [Suspect]
     Dosage: 107.25 mg, qd; over 15-30 min
     Route: 042
     Dates: start: 20120712, end: 20120715
  7. MERCAPTOPURINE [Suspect]
     Indication: LYMPHOCYTIC LEUKAEMIA
     Dosage: 625 mg, 1x/w
     Route: 048
     Dates: start: 20120705, end: 20120718
  8. MERCAPTOPURINE [Suspect]
     Dosage: 85.8 mg, 1x/w
     Route: 048
     Dates: end: 20120718
  9. VINCRISTINE [Suspect]
     Indication: LYMPHOCYTIC LEUKAEMIA
     Dosage: 2 mg, qd
     Route: 042
     Dates: start: 20120602
  10. VINCRISTINE [Suspect]
     Dosage: 2 mg, qd
     Route: 042
     Dates: start: 20120608
  11. VINCRISTINE [Suspect]
     Dosage: 2 mg, qd
     Route: 042
     Dates: start: 20120615
  12. VINCRISTINE [Suspect]
     Dosage: 2 mg, qd
     Route: 042
     Dates: start: 20120622
  13. VINCRISTINE [Suspect]
     Dosage: 2 mg, qd
     Route: 042
     Dates: start: 20120719
  14. VINCRISTINE [Suspect]
     Dosage: 2 mg, qd
     Route: 042
     Dates: start: 20120726
  15. VINCRISTINE [Suspect]
     Dosage: 2.14 mg, UNK; push over 1 min
     Route: 042
     Dates: end: 20120726
  16. VINCRISTINE [Suspect]
     Dosage: 2 mg, qd
     Route: 042
     Dates: start: 20120817
  17. VINCRISTINE [Suspect]
     Dosage: 2 mg, qd
     Route: 042
     Dates: start: 20120824
  18. METHOTREXATE [Suspect]
     Indication: LYMPHOCYTIC LEUKAEMIA
     Dosage: 15 mg, UNK
     Route: 037
     Dates: start: 20120608
  19. METHOTREXATE [Suspect]
     Dosage: 15 mg, UNK
     Route: 037
     Dates: start: 20120628
  20. METHOTREXATE [Suspect]
     Dosage: 15 mg, UNK
     Route: 037
     Dates: start: 20120705
  21. METHOTREXATE [Suspect]
     Dosage: 15 mg, UNK
     Route: 037
     Dates: start: 20120712
  22. METHOTREXATE [Suspect]
     Dosage: 15 mg, UNK
     Route: 037
     Dates: start: 20120719
  23. METHOTREXATE [Suspect]
     Dosage: 15 mg, 1x/w
     Route: 037
     Dates: start: 20120726
  24. PEGASPARGASE [Suspect]
     Indication: LYMPHOCYTIC LEUKAEMIA
     Dosage: 3475 iu, UNK
     Route: 042
     Dates: start: 20120605
  25. PEGASPARGASE [Suspect]
     Dosage: 3575 iu, UNK; day 15
     Route: 042
     Dates: start: 20120719
  26. PEGASPARGASE [Suspect]
     Dosage: 3575 iu, UNK
     Route: 042
     Dates: start: 20120817
  27. ETOPOSIDE [Suspect]
     Indication: LYMPHOCYTIC LEUKAEMIA
     Dosage: 143 mg, qd
     Route: 042
     Dates: start: 20120802, end: 20120806
  28. DAUNORUBICIN [Suspect]
     Indication: PRODUCT USED FOR UNKNOWN INDICATION
     Dosage: 35 mg, UNK
     Route: 042
     Dates: start: 20120602
  29. DAUNORUBICIN [Suspect]
     Dosage: 35 mg, UNK
     Route: 042
     Dates: start: 20120608
  30. DAUNORUBICIN [Suspect]
     Dosage: 35 mg, UNK
     Route: 042
     Dates: start: 20120615
  31. DAUNORUBICIN [Suspect]
     Dosage: 35 mg, UNK
     Route: 042
     Dates: start: 20120622
  32. PREDNISONE [Suspect]
     Indication: LYMPHOCYTIC LEUKAEMIA
     Dosage: 42 mg, bid
     Route: 048
     Dates: start: 20120602, end: 20120629
  33. AMPHOTERICINE [Suspect]
     Indication: CORYNEBACTERIUM INFECTION
     Dosage: 200 mg, prn
     Route: 065
     Dates: start: 20120814, end: 20120817
  34. AMPHOTERICINE [Suspect]
     Indication: ESCHERICHIA BACTERAEMIA
     Dosage: 200 mg, prn
     Route: 065
     Dates: start: 20120820, end: 20120826
  35. AMPHOTERICINE [Suspect]
     Dosage: 200 mg, prn
     Route: 065
     Dates: start: 20120827, end: 20120902
  36. AMPHOTERICIN B [Suspect]
     Dosage: 200 mg, prn
     Route: 065
     Dates: start: 20120903, end: 20120910
  37. AMPHOTERICIN B [Suspect]
     Dosage: 200 mg, prn
     Route: 065
     Dates: start: 20120911, end: 20120917
  38. AMPHOTERICIN B [Suspect]
  39. G-CSF [Concomitant]
     Indication: PRODUCT USED FOR UNKNOWN INDICATION
     Dosage: UNK
     Route: 065
     Dates: start: 20120827
  40. ACYCLOVIR [Concomitant]
     Indication: PRODUCT USED FOR UNKNOWN INDICATION
     Dosage: 400 mg, continousUNK
     Route: 065
     Dates: start: 20120822, end: 20120826
  41. ATIVAN [Concomitant]
     Indication: PRODUCT USED FOR UNKNOWN INDICATION
     Dosage: 1 mg, bid
     Route: 065
     Dates: start: 20120803, end: 20120806
  42. ATIVAN [Concomitant]
     Dosage: 1 mg, bid
     Route: 065
     Dates: start: 20120818, end: 20120818
  43. ATIVAN [Concomitant]
     Dosage: 1 mg, bid
     Route: 065
     Dates: start: 20120824, end: 20120911
  44. BALSAM PERU- ZINC [Concomitant]
     Indication: PRODUCT USED FOR UNKNOWN INDICATION
     Dosage: UNK
     Route: 065
     Dates: start: 20120813, end: 20120911
  45. CANCIDAS [Concomitant]
     Indication: PRODUCT USED FOR UNKNOWN INDICATION
     Dosage: 50 mg, tid
     Route: 065
     Dates: start: 20121010, end: 20121011
  46. CHLORHEXIDINE GLUCONATE [Concomitant]
     Indication: PRODUCT USED FOR UNKNOWN INDICATION
     Dosage: 15 ml, prn
     Route: 065
     Dates: start: 20120827, end: 20120925
  47. SODIUM CHLORIDE [Concomitant]
     Indication: PRODUCT USED FOR UNKNOWN INDICATION
     Dosage: 180 ml, UNK
     Route: 065
     Dates: start: 20120802, end: 20120806
  48. DIFLUCAN [Concomitant]
     Indication: PRODUCT USED FOR UNKNOWN INDICATION
     Dosage: 200 mg, prn
     Route: 065
     Dates: start: 20120817, end: 20120819
  49. DIMETHICONE [Concomitant]
     Indication: PRODUCT USED FOR UNKNOWN INDICATION
     Dosage: 1 %, UNK
     Route: 065
     Dates: start: 20120814, end: 20120912
  50. DOCUSATE SODIUM [Concomitant]
     Indication: PRODUCT USED FOR UNKNOWN INDICATION
     Dosage: 140/150 mg, UNK
     Route: 065
     Dates: start: 20120804, end: 20120806
  51. FLAGYL [Concomitant]
     Indication: PRODUCT USED FOR UNKNOWN INDICATION
     Dosage: 320 mg, tid
     Route: 065
     Dates: start: 20120901, end: 20120905
  52. FLAGYL [Concomitant]
     Dosage: 350 mg, prn
     Route: 065
     Dates: start: 20120914, end: 20120920
  53. HEPARINE [Concomitant]
     Indication: PRODUCT USED FOR UNKNOWN INDICATION
     Dosage: 3 ml/hr, tid
     Route: 065
     Dates: start: 20121010, end: 20121011
  54. HYDROCORTISONE [Concomitant]
     Indication: PRODUCT USED FOR UNKNOWN INDICATION
     Dosage: 140 mg, tid
     Route: 065
     Dates: start: 20120802
  55. HYDROCORTISONE [Concomitant]
     Dosage: 140 mg, tid
     Route: 065
     Dates: start: 20120803
  56. HYDROCORTISONE [Concomitant]
     Dosage: 140 mg, tid
     Route: 065
     Dates: start: 20120804
  57. INTRALIPID [Concomitant]
     Indication: PRODUCT USED FOR UNKNOWN INDICATION
     Dosage: UNK
     Route: 065
     Dates: start: 20120831
  58. INTRALIPID [Concomitant]
     Dosage: UNK
     Route: 065
     Dates: start: 20120902
  59. IOHEXOL [Concomitant]
     Indication: PRODUCT USED FOR UNKNOWN INDICATION
     Dosage: 50 ml, tid
     Route: 065
     Dates: start: 20120823, end: 20120901
  60. KETAMINE [Concomitant]
     Indication: PRODUCT USED FOR UNKNOWN INDICATION
     Dosage: 41.6 mg, qd
     Route: 065
     Dates: start: 20120830, end: 20120830
  61. LIDOCAINE [Concomitant]
     Indication: PRODUCT USED FOR UNKNOWN INDICATION
     Dosage: 4 %, qid
     Route: 065
     Dates: start: 20120811, end: 20120908
  62. MEGACE [Concomitant]
     Indication: PRODUCT USED FOR UNKNOWN INDICATION
     Dosage: 80 mg, qid
     Route: 065
     Dates: start: 20120824, end: 20120827
  63. MIRALAX [Concomitant]
     Indication: PRODUCT USED FOR UNKNOWN INDICATION
     Dosage: 1 packet; 1 x
     Route: 065
     Dates: start: 20120814, end: 20120831
  64. NALOXONE [Concomitant]
     Indication: PRODUCT USED FOR UNKNOWN INDICATION
     Dosage: 0.04 mg, UNK
     Route: 065
     Dates: start: 20120830, end: 20120830
  65. NALOXONE [Concomitant]
     Dosage: 0.04 mg, UNK
     Route: 065
     Dates: start: 20120901, end: 20120909
  66. ONDANSETRON [Concomitant]
     Indication: PRODUCT USED FOR UNKNOWN INDICATION
     Dosage: 7 mg, UNK (procedural only)
     Route: 065
     Dates: start: 20120802, end: 20120806
  67. ONDANSETRON [Concomitant]
     Dosage: 7 mg, UNK(procedural)
     Route: 065
     Dates: start: 20120811, end: 20120903
  68. ONDANSETRON [Concomitant]
     Dosage: 7 mg, UNK(procedural)
     Route: 065
     Dates: start: 20121011
  69. ONDANSETRON [Concomitant]
     Dosage: 4 mg/2ml, UNK(multiple doses/procedure)
     Route: 065
     Dates: start: 20120811, end: 20120913
  70. OXYCODONE [Concomitant]
     Indication: PRODUCT USED FOR UNKNOWN INDICATION
     Dosage: 5 mg, UNK9procedural only)
     Route: 065
     Dates: start: 20120811, end: 20120811
  71. OXYCODONE [Concomitant]
     Dosage: 5 mg, UNK(procedural)
     Route: 065
     Dates: start: 20120816, end: 20120820
  72. OXYCODONE [Concomitant]
     Dosage: 5 mg, UNK(procedure)
     Dates: start: 20120822, end: 20120827
  73. PERIDEX [Concomitant]
     Indication: PRODUCT USED FOR UNKNOWN INDICATION
     Dosage: 10 ml, qid
     Route: 065
     Dates: start: 20120802, end: 20120806
  74. PERIDEX [Concomitant]
     Dosage: 10 ml, qid
     Route: 065
     Dates: start: 20120820, end: 20120821
  75. POTASSIUM CHLORIDE [Concomitant]
     Indication: PRODUCT USED FOR UNKNOWN INDICATION
     Dosage: 70 ml/hr, 1xUNK
     Route: 065
     Dates: start: 20121010, end: 20121011
  76. POTASSIUM PHOSPHATE [Concomitant]
     Indication: PRODUCT USED FOR UNKNOWN INDICATION
     Dosage: 5 mg, bid
     Route: 065
     Dates: start: 20120825
  77. POTASSIUM PHOSPHATE [Concomitant]
     Dosage: 5 mg, bid
     Route: 065
     Dates: start: 20120826
  78. POTASSIUM PHOSPHATE [Concomitant]
     Dosage: 5 mg, bid
     Route: 065
     Dates: start: 20120829
  79. PROPOFOL [Concomitant]
     Indication: CARDIAC FAILURE
     Dosage: 42 mg, q4hr
     Route: 065
     Dates: start: 20120830, end: 20120830
  80. RACEPINEPHRINE [Concomitant]
     Indication: RIGHT VENTRICULAR DYSFUNCTION
     Dosage: 0.25 ml, q4hr
     Route: 065
     Dates: start: 20120831, end: 20120831
  81. RACEPINEPHRINE [Concomitant]
     Indication: LEFT VENTRICULAR DYSFUNCTION
  82. SCOPOLAMINE [Concomitant]
     Indication: PRODUCT USED FOR UNKNOWN INDICATION
     Dosage: 1.5 mg, qid
     Route: 065
     Dates: start: 20120802, end: 20120806
  83. SENNOSIDE [Concomitant]
     Indication: PRODUCT USED FOR UNKNOWN INDICATION
     Dosage: 17.2 mg, UNK, continuous
     Route: 065
     Dates: start: 20120805, end: 20120806
  84. TOBRAMYCIN [Concomitant]
     Indication: PRODUCT USED FOR UNKNOWN INDICATION
     Dosage: 105/125 mg; continuous
     Route: 065
     Dates: start: 20120812, end: 20120813
  85. TOBRAMYCIN [Concomitant]
     Dosage: 105/125 mg; continuous
     Route: 065
     Dates: start: 20120826, end: 20120827
  86. TOBRAMYCIN [Concomitant]
     Dosage: 105/125 mg; continuous
     Route: 065
     Dates: start: 20120827, end: 20120829
  87. VERSED [Concomitant]
     Indication: PRODUCT USED FOR UNKNOWN INDICATION
     Dosage: 1 mg, qd
     Route: 065
     Dates: start: 20120830, end: 20120830
  88. ZANTAC [Concomitant]
     Indication: PRODUCT USED FOR UNKNOWN INDICATION
     Dosage: 75 mg, qd
     Route: 065
     Dates: start: 20120827, end: 20120827

REACTIONS (20)
  - Cardiac arrest [Recovered/Resolved]
  - Right ventricular dysfunction [Unknown]
  - Cardiac failure [Not Recovered/Not Resolved]
  - Hypokalaemia [Recovered/Resolved]
  - Hypoxia [Recovered/Resolved]
  - Left ventricular dysfunction [Not Recovered/Not Resolved]
  - Lower gastrointestinal haemorrhage [Recovered/Resolved]
  - Pancytopenia [Unknown]
  - Pericardial effusion [Not Recovered/Not Resolved]
  - Pyrexia [Recovered/Resolved]
  - Device related infection [Recovered/Resolved]
  - Neutrophil count decreased [Not Recovered/Not Resolved]
  - Corynebacterium infection [Recovered/Resolved]
  - Pancreatitis [Recovered/Resolved]
  - Pneumonia [Unknown]
  - Pulmonary oedema [Unknown]
  - Skin infection [Unknown]
  - Aspergillosis [Unknown]
  - Pain in extremity [Unknown]
  - Pneumonitis [Not Recovered/Not Resolved]
